FAERS Safety Report 10078937 (Version 1)
Quarter: 2014Q2

REPORT INFORMATION
  Report Type: Spontaneous
  Country: US (occurrence: US)
  Receive Date: 20140415
  Receipt Date: 20140415
  Transmission Date: 20141212
  Serious: Yes (Hospitalization)
  Sender: FDA-Public Use
  Company Number: US-ASTRAZENECA-2014SE24256

PATIENT
  Age: 17 Year
  Sex: Male

DRUGS (2)
  1. NEXIUM [Suspect]
     Route: 048
  2. NEXIUM IV [Suspect]
     Dosage: BID
     Route: 042

REACTIONS (2)
  - Ischaemic ulcer [Unknown]
  - Off label use [Unknown]
